FAERS Safety Report 10191266 (Version 2)
Quarter: 2014Q2

REPORT INFORMATION
  Report Type: Spontaneous
  Country: US (occurrence: US)
  Receive Date: 20140523
  Receipt Date: 20140604
  Transmission Date: 20141212
  Serious: No
  Sender: FDA-Public Use
  Company Number: US-SA-2014SA061418

PATIENT
  Age: 86 Year
  Sex: Male

DRUGS (1)
  1. LOVENOX [Suspect]
     Indication: TROPONIN INCREASED
     Route: 065

REACTIONS (1)
  - Drug administered at inappropriate site [Unknown]
